FAERS Safety Report 5179576-5 (Version None)
Quarter: 2006Q4

REPORT INFORMATION
  Report Type: 
  Country: None (occurrence: None)
  Receive Date: 20061219
  Receipt Date: 20061214
  Transmission Date: 20070319
  Serious: Yes (Hospitalization)
  Sender: FDA-Public Use
  Company Number: US-ROXANE LABORATORIES, INC-2006-DE-06689GD

PATIENT
  Age: 37 Year
  Sex: Female
  Weight: 45 kg

DRUGS (6)
  1. MORPHINE SULFATE [Suspect]
     Indication: IMPAIRED GASTRIC EMPTYING
  2. ACETAMINOPHEN AND HYDROCODONE BITARTRATE [Suspect]
     Indication: IMPAIRED GASTRIC EMPTYING
     Dosage: HYDROCODONE WITH ACETAMINOPHEN 325 MG 4 - 6 TABLETS/DAY
     Route: 048
  3. AMITRIPTYLINE HCL [Suspect]
     Indication: IMPAIRED GASTRIC EMPTYING
  4. PROMETHAZINE [Concomitant]
     Indication: NAUSEA
     Dosage: 25 MG EVERY 4 TO 6 H
     Route: 048
  5. ONDANSETRON HCL [Concomitant]
     Route: 048
  6. NADOLOL [Concomitant]
     Indication: MIGRAINE PROPHYLAXIS
     Route: 048

REACTIONS (5)
  - ABDOMINAL PAIN UPPER [None]
  - DRUG TOLERANCE [None]
  - IMPAIRED GASTRIC EMPTYING [None]
  - NAUSEA [None]
  - VOMITING [None]
